FAERS Safety Report 8120576-0 (Version None)
Quarter: 2012Q1

REPORT INFORMATION
  Report Type: 
  Country: None (occurrence: None)
  Receive Date: 20120207
  Receipt Date: 20120131
  Transmission Date: 20120608
  Serious: Yes (Hospitalization, Other)
  Sender: FDA-Public Use
  Company Number: HU-PFIZER INC-2011282859

PATIENT
  Age: 69 Year
  Sex: Female
  Weight: 57 kg

DRUGS (11)
  1. XANAX [Interacting]
     Indication: PANIC REACTION
     Dosage: 0.25 MG, 2X/DAY
     Dates: start: 20100101, end: 20111118
  2. EZETIMIBE [Interacting]
  3. MIDAZOLAM HCL [Concomitant]
     Indication: SEDATIVE THERAPY
     Dosage: UNK
  4. XANAX [Suspect]
     Indication: MENTAL DISORDER
     Dosage: 0.25 MG, 3X/DAY
     Dates: start: 20071001, end: 20100101
  5. CORVATON RETARD [Concomitant]
     Dosage: UNK
  6. TALLITON [Concomitant]
     Dosage: UNK
  7. SULFASALAZINE [Concomitant]
     Dosage: UNK
  8. RAMIPRIL [Concomitant]
     Dosage: UNK
  9. NORFLOXACIN [Concomitant]
     Dosage: UNK
     Dates: start: 20101104, end: 20101106
  10. PLAVIX [Interacting]
     Dosage: UNK
     Dates: end: 20081201
  11. TICLID [Interacting]
     Dosage: UNK
     Dates: start: 20090101

REACTIONS (11)
  - TOXICITY TO VARIOUS AGENTS [None]
  - ANAEMIA [None]
  - PHOTOSENSITIVITY REACTION [None]
  - RENAL IMPAIRMENT [None]
  - HYPOTENSION [None]
  - HEAT STROKE [None]
  - SUNBURN [None]
  - HORMONE LEVEL ABNORMAL [None]
  - RENAL PAIN [None]
  - DRUG INTERACTION [None]
  - NEPHROLITHIASIS [None]
